FAERS Safety Report 10378468 (Version 4)
Quarter: 2014Q3

REPORT INFORMATION
  Report Type: Spontaneous
  Country: BR (occurrence: BR)
  Receive Date: 20140812
  Receipt Date: 20140827
  Transmission Date: 20150326
  Serious: Yes (Hospitalization, Other)
  Sender: FDA-Public Use
  Company Number: BR-ASTRAZENECA-2014SE47310

PATIENT
  Sex: Female

DRUGS (5)
  1. TORLOS [Concomitant]
     Indication: BLOOD PRESSURE ABNORMAL
  2. ASPIRINA PREVENT [Concomitant]
     Active Substance: ASPIRIN
     Dates: end: 20140615
  3. MONOCORDIL [Concomitant]
     Active Substance: ISOSORBIDE MONONITRATE
  4. BRILINTA [Suspect]
     Active Substance: TICAGRELOR
     Indication: CORONARY ARTERY OCCLUSION
     Route: 048
     Dates: start: 201404, end: 20140615
  5. RECONTER [Concomitant]
     Indication: ANXIETY

REACTIONS (2)
  - Myocardial infarction [Recovered/Resolved]
  - Malaise [Recovered/Resolved]

NARRATIVE: CASE EVENT DATE: 201404
